FAERS Safety Report 8402854-0 (Version None)
Quarter: 2012Q2

REPORT INFORMATION
  Report Type: 
  Country: None (occurrence: None)
  Receive Date: 20120529
  Receipt Date: 20120516
  Transmission Date: 20120825
  Serious: Yes (Other)
  Sender: FDA-Public Use
  Company Number: UCM201205-000044

PATIENT
  Age: 50 Year
  Sex: Female

DRUGS (8)
  1. BISOPROLOL FUMARATE [Suspect]
     Dosage: 2.5 MG DAILY
  2. FLUOXETINE [Suspect]
  3. LEVOTHYROXINE SODIUM [Suspect]
     Dosage: 125 UG DAILY
  4. ZOPICLONE [Suspect]
     Dosage: 7.5 MG
  5. LITHIUM CARBONATE [Suspect]
     Dosage: 800 MG PER DAY
  6. VENLAFAXINE [Suspect]
     Dosage: 7.5 MG/DAY, EXTENDED-RELEASE
  7. LORAZEPAM [Suspect]
  8. FLUOXETINE [Suspect]
     Dosage: 60 MG/DAY

REACTIONS (7)
  - AGITATION [None]
  - DRUG INTERACTION [None]
  - FEELING HOT [None]
  - DRUG INEFFECTIVE [None]
  - TREMOR [None]
  - CONSTIPATION [None]
  - DRUG LEVEL INCREASED [None]
